FAERS Safety Report 6982285-0 (Version None)
Quarter: 2010Q3

REPORT INFORMATION
  Report Type: 
  Country: None (occurrence: None)
  Receive Date: 20100914
  Receipt Date: 20091214
  Transmission Date: 20110219
  Serious: Yes (Other)
  Sender: FDA-Public Use
  Company Number: US-PFIZER INC-2009310322

PATIENT
  Sex: Female
  Weight: 63.492 kg

DRUGS (3)
  1. LYRICA [Suspect]
     Indication: NEURALGIA
     Dosage: 200 MG, 1X/DAY
     Route: 048
     Dates: start: 20080801, end: 20080801
  2. ROBAXIN [Concomitant]
     Dosage: UNK
  3. NORCO [Concomitant]
     Dosage: UNK

REACTIONS (5)
  - APHASIA [None]
  - BALANCE DISORDER [None]
  - HYPERTENSION [None]
  - SPEECH DISORDER [None]
  - TINNITUS [None]
